FAERS Safety Report 15819495 (Version 2)
Quarter: 2019Q1

REPORT INFORMATION
  Report Type: Spontaneous
  Country: US (occurrence: US)
  Receive Date: 20190114
  Receipt Date: 20190124
  Transmission Date: 20190417
  Serious: No
  Sender: FDA-Public Use
  Company Number: PHEH2019US000627

PATIENT
  Sex: Female

DRUGS (2)
  1. AFINITOR [Suspect]
     Active Substance: EVEROLIMUS
     Indication: UTERINE CANCER
     Dosage: 10 MG, QD
     Route: 048
     Dates: start: 20181220
  2. FEMARA [Concomitant]
     Active Substance: LETROZOLE

REACTIONS (8)
  - Headache [Unknown]
  - Product use in unapproved indication [Unknown]
  - Nausea [Unknown]
  - Dysphagia [Unknown]
  - Decreased appetite [Unknown]
  - Burning sensation [Unknown]
  - Dizziness [Unknown]
  - Malaise [Unknown]
